FAERS Safety Report 25815713 (Version 1)
Quarter: 2025Q3

REPORT INFORMATION
  Report Type: Spontaneous
  Country: US (occurrence: US)
  Receive Date: 20250918
  Receipt Date: 20250918
  Transmission Date: 20251021
  Serious: Yes (Other)
  Sender: UNILEVER
  Company Number: US-Unilever-2184749

PATIENT
  Age: 18 Year
  Sex: Female

DRUGS (1)
  1. ALUMINUM SESQUICHLOROHYDRATE [Suspect]
     Active Substance: ALUMINUM SESQUICHLOROHYDRATE

REACTIONS (3)
  - Cyst [Not Recovered/Not Resolved]
  - Application site erythema [Recovered/Resolved]
  - Application site pain [Recovered/Resolved]
